FAERS Safety Report 7199400-9 (Version None)
Quarter: 2010Q4

REPORT INFORMATION
  Report Type: 
  Country: None (occurrence: None)
  Receive Date: 20101223
  Receipt Date: 20101223
  Transmission Date: 20110411
  Serious: Yes (Other)
  Sender: FDA-Public Use
  Company Number: None

PATIENT
  Sex: Female
  Weight: 77.1115 kg

DRUGS (1)
  1. PROPOXYPHENE-ACETAMINOPHEN 100-650 [Suspect]
     Indication: ARTHRALGIA
     Dosage: 1 TABLET 3 TIMES A DAY MANY YEARS

REACTIONS (2)
  - CARDIAC FLUTTER [None]
  - HEART RATE IRREGULAR [None]
